FAERS Safety Report 19070380 (Version 1)
Quarter: 2021Q1

REPORT INFORMATION
  Report Type: Spontaneous
  Country: FR (occurrence: FR)
  Receive Date: 20210329
  Receipt Date: 20210329
  Transmission Date: 20210420
  Serious: Yes (Other)
  Sender: FDA-Public Use
  Company Number: FR-BRISTOL-MYERS SQUIBB COMPANY-BMS-2021-029198

PATIENT
  Age: 90 Year
  Sex: Female
  Weight: 44 kg

DRUGS (2)
  1. ELIQUIS [Suspect]
     Active Substance: APIXABAN
     Indication: CEREBROVASCULAR ACCIDENT PROPHYLAXIS
     Dosage: 2.5 MILLIGRAM, BID
     Route: 065
  2. TILDIEM [Concomitant]
     Active Substance: DILTIAZEM HYDROCHLORIDE
     Indication: PRODUCT USED FOR UNKNOWN INDICATION
     Dosage: 60 MILLIGRAM, BID
     Route: 065

REACTIONS (12)
  - Hypoacusis [Unknown]
  - Gastrointestinal disorder [Unknown]
  - Haematemesis [Unknown]
  - Alopecia [Unknown]
  - Weight decreased [Unknown]
  - Ocular hyperaemia [Unknown]
  - Liver disorder [Unknown]
  - Renal disorder [Unknown]
  - Skin discolouration [Unknown]
  - Insomnia [Unknown]
  - Abdominal pain upper [Unknown]
  - Heart rate abnormal [Unknown]
